FAERS Safety Report 20595518 (Version 1)
Quarter: 2022Q1

REPORT INFORMATION
  Report Type: Spontaneous
  Country: BE (occurrence: BE)
  Receive Date: 20220315
  Receipt Date: 20220315
  Transmission Date: 20220424
  Serious: Yes (Other)
  Sender: FDA-Public Use
  Company Number: BE-PFIZER INC-202200408068

PATIENT
  Age: 13 Year
  Sex: Female

DRUGS (4)
  1. SERTRALINE HYDROCHLORIDE [Suspect]
     Active Substance: SERTRALINE HYDROCHLORIDE
     Indication: Major depression
     Dosage: 25 MG, DAILY
  2. SERTRALINE HYDROCHLORIDE [Suspect]
     Active Substance: SERTRALINE HYDROCHLORIDE
     Indication: Anxiety
  3. HALOPERIDOL [Concomitant]
     Active Substance: HALOPERIDOL
     Indication: Major depression
     Dosage: UNK, ONE OFF BASIS
     Route: 030
  4. HALOPERIDOL [Concomitant]
     Active Substance: HALOPERIDOL
     Indication: Anxiety

REACTIONS (4)
  - Hallucinations, mixed [Recovering/Resolving]
  - Delusion [Recovering/Resolving]
  - Psychotic disorder [Recovering/Resolving]
  - Off label use [Unknown]
